FAERS Safety Report 11794535 (Version 1)
Quarter: 2015Q4

REPORT INFORMATION
  Report Type: Spontaneous
  Country: DE (occurrence: DE)
  Receive Date: 20151202
  Receipt Date: 20151202
  Transmission Date: 20160305
  Serious: Yes (Hospitalization)
  Sender: FDA-Public Use
  Company Number: DE-TEVA-612163GER

PATIENT
  Age: 73 Year
  Sex: Male

DRUGS (21)
  1. VENLAFAXIN [Suspect]
     Active Substance: VENLAFAXINE HYDROCHLORIDE
     Route: 048
     Dates: start: 20141014, end: 20141015
  2. VENLAFAXIN [Suspect]
     Active Substance: VENLAFAXINE HYDROCHLORIDE
     Route: 048
     Dates: start: 20141016, end: 20141020
  3. OLANZAPIN [Suspect]
     Active Substance: OLANZAPINE
     Dosage: 2.5-10MG/D
     Route: 048
     Dates: start: 20140711, end: 20140818
  4. BIFITERAL [Concomitant]
     Active Substance: LACTULOSE
     Dosage: UNTIL FURTHER NOTICE
     Route: 048
     Dates: start: 20140724
  5. OLANZAPIN [Suspect]
     Active Substance: OLANZAPINE
     Route: 048
     Dates: start: 20140819, end: 20140920
  6. SIMVASTATIN. [Concomitant]
     Active Substance: SIMVASTATIN
     Route: 048
     Dates: end: 20141020
  7. VENLAFAXIN [Suspect]
     Active Substance: VENLAFAXINE HYDROCHLORIDE
     Dosage: 37.5-150 MG/D
     Route: 048
     Dates: start: 20140808, end: 20140826
  8. VENLAFAXIN [Suspect]
     Active Substance: VENLAFAXINE HYDROCHLORIDE
     Route: 048
     Dates: start: 20140827, end: 20140924
  9. MIRTAZAPIN [Suspect]
     Active Substance: MIRTAZAPINE
     Dosage: 7.5 -30MG/D
     Route: 048
     Dates: start: 20140711, end: 20140722
  10. RAMIPRIL. [Concomitant]
     Active Substance: RAMIPRIL
     Dosage: INTAKE SINCE MONTHS; UNTIL FURTHER NOTICE
     Route: 048
  11. VENLAFAXIN [Suspect]
     Active Substance: VENLAFAXINE HYDROCHLORIDE
     Route: 048
     Dates: start: 20140925, end: 20141013
  12. LORAZEPAM. [Concomitant]
     Active Substance: LORAZEPAM
     Route: 048
     Dates: start: 20140627, end: 20140728
  13. METOPROLOL [Concomitant]
     Active Substance: METOPROLOL
     Indication: HYPERTENSION
  14. ALLOPURINOL. [Concomitant]
     Active Substance: ALLOPURINOL
     Route: 048
     Dates: end: 20141027
  15. FOLSAEURE [Concomitant]
     Active Substance: FOLIC ACID
     Route: 048
     Dates: start: 20140819, end: 20141028
  16. KALINOR [Concomitant]
     Active Substance: POTASSIUM CITRATE
     Dosage: UNTIL FURTHER NOTICE
     Route: 048
     Dates: start: 20140809
  17. AMLODIPINE [Concomitant]
     Active Substance: AMLODIPINE BESYLATE
     Dosage: INTAKE SINCE MONTHS; UNTIL FURTHER NOTICE
     Route: 048
  18. MOXONIDIN [Concomitant]
     Active Substance: MOXONIDINE
     Indication: HYPERTENSION
  19. MIRTAZAPIN [Suspect]
     Active Substance: MIRTAZAPINE
     Route: 048
     Dates: start: 20140723, end: 20140924
  20. OLANZAPIN [Suspect]
     Active Substance: OLANZAPINE
     Route: 048
     Dates: start: 20140921, end: 20140923
  21. OLANZAPIN [Suspect]
     Active Substance: OLANZAPINE
     Route: 048
     Dates: start: 20140924, end: 20141004

REACTIONS (1)
  - Parkinsonism [Recovered/Resolved]

NARRATIVE: CASE EVENT DATE: 20140917
